APPROVED DRUG PRODUCT: DOXERCALCIFEROL
Active Ingredient: DOXERCALCIFEROL
Strength: 4MCG/2ML (2MCG/ML)
Dosage Form/Route: INJECTABLE;INJECTION
Application: A211670 | Product #001 | TE Code: AP
Applicant: MEITHEAL PHARMACEUTICALS INC
Approved: Feb 7, 2020 | RLD: No | RS: Yes | Type: RX